FAERS Safety Report 9068374 (Version 1)
Quarter: 2013Q1

REPORT INFORMATION
  Report Type: Spontaneous
  Country: US (occurrence: None)
  Receive Date: 20130212
  Receipt Date: 20130212
  Transmission Date: 20140127
  Serious: Yes (Other)
  Sender: FDA-Public Use
  Company Number: None

PATIENT
  Age: 56 Year
  Sex: Female
  Weight: 63.5 kg

DRUGS (1)
  1. ZITHROMAX [Suspect]
     Dosage: AS DIRECTED

REACTIONS (8)
  - Malaise [None]
  - Diarrhoea [None]
  - Nausea [None]
  - Pain [None]
  - Dehydration [None]
  - Fatigue [None]
  - Product label issue [None]
  - Food interaction [None]
